FAERS Safety Report 4449488-0 (Version None)
Quarter: 2004Q3

REPORT INFORMATION
  Report Type: 
  Country: None (occurrence: None)
  Receive Date: 20040910
  Receipt Date: 20040910
  Transmission Date: 20050211
  Serious: Yes (Life-Threatening, Hospitalization)
  Sender: FDA-Public Use
  Company Number: None

PATIENT
  Age: 78 Year
  Sex: Male
  Weight: 87.5 kg

DRUGS (2)
  1. ZYPREXA [Suspect]
     Indication: AGITATION
     Dosage: 10 MG   QHS   BUCCAL
     Route: 002
     Dates: start: 20040825, end: 20040830
  2. ZYPREXA [Suspect]
     Indication: AGGRESSION
     Dosage: 5  Q6HP  BUCCAL
     Route: 002
     Dates: start: 20040825, end: 20040830

REACTIONS (2)
  - NEUTROPENIA [None]
  - SEPSIS [None]
